FAERS Safety Report 23187441 (Version 1)
Quarter: 2023Q4

REPORT INFORMATION
  Report Type: Report from Study
  Country: FR (occurrence: FR)
  Receive Date: 20231115
  Receipt Date: 20231115
  Transmission Date: 20240110
  Serious: Yes (Hospitalization)
  Sender: FDA-Public Use
  Company Number: FR-002147023-NVSC2023FR241156

PATIENT
  Age: 73 Year
  Sex: Male
  Weight: 74 kg

DRUGS (1)
  1. PLUVICTO [Suspect]
     Active Substance: LUTETIUM LU-177 VIPIVOTIDE TETRAXETAN
     Indication: Prostate cancer metastatic
     Dosage: 7216 MBQ (1000 MBQ/ML)
     Route: 042
     Dates: start: 20230310, end: 20230310

REACTIONS (4)
  - Spinal cord infection [Recovering/Resolving]
  - Bacteraemia [Unknown]
  - Back pain [Unknown]
  - Metastases to spine [Unknown]

NARRATIVE: CASE EVENT DATE: 20230510
